FAERS Safety Report 6102660-6 (Version None)
Quarter: 2009Q1

REPORT INFORMATION
  Report Type: 
  Country: None (occurrence: None)
  Receive Date: 20090304
  Receipt Date: 20081124
  Transmission Date: 20090719
  Serious: No
  Sender: FDA-Public Use
  Company Number: A0757876A

PATIENT
  Age: 51 Year
  Sex: Female

DRUGS (7)
  1. REQUIP [Suspect]
     Indication: RESTLESS LEGS SYNDROME
     Dosage: 2MG PER DAY
     Route: 048
     Dates: start: 20040101
  2. TRAMADOL HCL [Concomitant]
  3. LEXAPRO [Concomitant]
  4. HYDROCHLOROTHIAZIDE [Concomitant]
  5. IRON SUPPLEMENT [Concomitant]
  6. PROPRANOLOL [Concomitant]
  7. LEVOXYL [Concomitant]

REACTIONS (2)
  - DRUG INEFFECTIVE [None]
  - MUSCLE SPASMS [None]
